FAERS Safety Report 7432265-6 (Version None)
Quarter: 2011Q2

REPORT INFORMATION
  Report Type: 
  Country: None (occurrence: None)
  Receive Date: 20110422
  Receipt Date: 20110412
  Transmission Date: 20111010
  Serious: Yes (Hospitalization)
  Sender: FDA-Public Use
  Company Number: US-JNJFOC-20110406549

PATIENT
  Age: 12 Year
  Sex: Female
  Weight: 64 kg

DRUGS (6)
  1. ACETAMINOPHEN [Suspect]
     Route: 048
  2. RISPERIDONE [Concomitant]
  3. CITALOPRAM HYDROBROMIDE [Concomitant]
  4. ACETAMINOPHEN [Suspect]
     Indication: PRODUCT USED FOR UNKNOWN INDICATION
     Route: 048
  5. TYLENOL PM [Suspect]
     Indication: PRODUCT USED FOR UNKNOWN INDICATION
     Route: 048
  6. DEXTROAMPHETAMINE [Concomitant]

REACTIONS (6)
  - HEPATIC ENCEPHALOPATHY [None]
  - DEPRESSED LEVEL OF CONSCIOUSNESS [None]
  - HEPATIC FAILURE [None]
  - SELF INJURIOUS BEHAVIOUR [None]
  - RESPIRATORY DISTRESS [None]
  - INTENTIONAL OVERDOSE [None]
